FAERS Safety Report 5879881-0 (Version None)
Quarter: 2008Q3

REPORT INFORMATION
  Report Type: 
  Country: None (occurrence: None)
  Receive Date: 20080912
  Receipt Date: 20080901
  Transmission Date: 20090109
  Serious: Yes (Other)
  Sender: FDA-Public Use
  Company Number: DE-WYE-H05901908

PATIENT
  Sex: Male

DRUGS (1)
  1. AMIODARONE HCL [Suspect]
     Indication: ATRIAL FLUTTER
     Dosage: 15 MG/KG OVER 1 HOUR
     Route: 042

REACTIONS (2)
  - ACCIDENTAL OVERDOSE [None]
  - CIRCULATORY COLLAPSE [None]
